FAERS Safety Report 23147090 (Version 10)
Quarter: 2024Q1

REPORT INFORMATION
  Report Type: Spontaneous
  Country: CA (occurrence: CA)
  Receive Date: 20231106
  Receipt Date: 20240228
  Transmission Date: 20240409
  Serious: Yes (Hospitalization, Other)
  Sender: FDA-Public Use
  Company Number: CA-CELLTRION INC.-2023CA013137

PATIENT

DRUGS (8)
  1. INFLECTRA [Suspect]
     Active Substance: INFLIXIMAB-DYYB
     Indication: Colitis ulcerative
     Dosage: 10 MG/KG, HOSPITAL START
     Route: 042
     Dates: start: 20230607, end: 20230607
  2. INFLECTRA [Suspect]
     Active Substance: INFLIXIMAB-DYYB
     Dosage: 315 MG, (5MG/KG) (WEEK 2),SUPPOSED TO RECEIVED 10MG/KG (630MG), WEEK 0, 2, 6 THEN Q8 WEEKS
     Route: 042
     Dates: start: 20230622
  3. INFLECTRA [Suspect]
     Active Substance: INFLIXIMAB-DYYB
     Dosage: 315 MG, AFTER 7 DAYS
     Route: 042
     Dates: start: 20230629
  4. INFLECTRA [Suspect]
     Active Substance: INFLIXIMAB-DYYB
     Dosage: 345MG, 7 WEEKS AND 3 DAYS
     Route: 042
     Dates: start: 20230911
  5. INFLECTRA [Suspect]
     Active Substance: INFLIXIMAB-DYYB
     Dosage: 344MG (5MG/KG), 8 WEEKS
     Route: 042
     Dates: start: 20231108
  6. INFLECTRA [Suspect]
     Active Substance: INFLIXIMAB-DYYB
     Dosage: 10 MG/KG (600MG), EVERY 4 WEEKS
     Route: 042
     Dates: start: 20231207
  7. PREDNISONE [Concomitant]
     Active Substance: PREDNISONE
     Dosage: 1 DF
     Dates: start: 202306
  8. PREDNISONE [Concomitant]
     Active Substance: PREDNISONE
     Dosage: 35 MG
     Route: 048
     Dates: start: 2023

REACTIONS (9)
  - COVID-19 [Recovered/Resolved]
  - Speech disorder [Not Recovered/Not Resolved]
  - Hypotonia [Not Recovered/Not Resolved]
  - Condition aggravated [Recovering/Resolving]
  - Diarrhoea haemorrhagic [Recovered/Resolved]
  - Rash macular [Not Recovered/Not Resolved]
  - Off label use [Unknown]
  - Off label use [Unknown]
  - Incorrect dose administered [Unknown]

NARRATIVE: CASE EVENT DATE: 20230101
